FAERS Safety Report 4317916-7 (Version None)
Quarter: 2004Q1

REPORT INFORMATION
  Report Type: 
  Country: None (occurrence: None)
  Receive Date: 20040316
  Receipt Date: 20040305
  Transmission Date: 20041129
  Serious: Yes (Hospitalization)
  Sender: FDA-Public Use
  Company Number: CA-ROCHE-360981

PATIENT
  Age: 19 Year
  Sex: Male

DRUGS (1)
  1. FUZEON [Suspect]
     Indication: HIV INFECTION
     Dosage: FORM REPORTED AS: VIALS
     Route: 058
     Dates: start: 20040215, end: 20040221

REACTIONS (1)
  - PERITONITIS [None]
